FAERS Safety Report 19646698 (Version 1)
Quarter: 2021Q3

REPORT INFORMATION
  Report Type: Spontaneous
  Country: US (occurrence: US)
  Receive Date: 20210802
  Receipt Date: 20210802
  Transmission Date: 20211014
  Serious: No
  Sender: FDA-Public Use
  Company Number: US-GLAXOSMITHKLINE-US2021AMR163646

PATIENT
  Sex: Female

DRUGS (1)
  1. WELLBUTRIN XL [Suspect]
     Active Substance: BUPROPION HYDROCHLORIDE
     Indication: BIPOLAR DISORDER
     Dosage: 150 MG
     Route: 048
     Dates: start: 2011

REACTIONS (5)
  - Inability to afford medication [Unknown]
  - Insomnia [Unknown]
  - Product use in unapproved indication [Unknown]
  - Headache [Unknown]
  - Therapy interrupted [Unknown]
